FAERS Safety Report 5038331-7 (Version None)
Quarter: 2006Q2

REPORT INFORMATION
  Report Type: 
  Country: None (occurrence: None)
  Receive Date: 20060627
  Receipt Date: 20060627
  Transmission Date: 20061013
  Serious: Yes (Hospitalization)
  Sender: FDA-Public Use
  Company Number: None

PATIENT
  Age: 47 Year
  Sex: Male
  Weight: 143.7903 kg

DRUGS (16)
  1. DILANTIN [Suspect]
     Dosage: 400 MG BID INCREASED FROM 300 BID
     Dates: start: 20050101
  2. ACETAMINOPHEN AND HYDROCODONE BITARTRATE [Concomitant]
  3. GABAPENTIN [Concomitant]
  4. FLUNISOLIDE [Concomitant]
  5. ASPIRIN [Concomitant]
  6. ATORVASTATIN CALCIUM [Concomitant]
  7. FOSINOPRIL [Concomitant]
  8. REGULAR INSULIN [Concomitant]
  9. ISDN [Concomitant]
  10. METOPROLOL TARTRATE [Concomitant]
  11. NIASPAN ER [Concomitant]
  12. OMEPRAZOLE [Concomitant]
  13. TERAZOSIN HCL [Concomitant]
  14. FUROSEMIDE [Concomitant]
  15. NPH INSULIN [Concomitant]
  16. OLANZAPINE [Concomitant]

REACTIONS (12)
  - ARRHYTHMIA [None]
  - ASTHENIA [None]
  - BRADYCARDIA [None]
  - CELLULITIS [None]
  - COORDINATION ABNORMAL [None]
  - DRUG LEVEL CHANGED [None]
  - FALL [None]
  - HYPOTENSION [None]
  - MENTAL STATUS CHANGES [None]
  - NYSTAGMUS [None]
  - TREMOR [None]
  - WEIGHT INCREASED [None]
